FAERS Safety Report 14939923 (Version 1)
Quarter: 2018Q2

REPORT INFORMATION
  Report Type: Spontaneous
  Country: ZA (occurrence: ZA)
  Receive Date: 20180525
  Receipt Date: 20180525
  Transmission Date: 20180711
  Serious: Yes (Hospitalization, Other)
  Sender: FDA-Public Use
  Company Number: ZA-PFIZER INC-2018208445

PATIENT
  Age: 78 Year
  Sex: Female

DRUGS (7)
  1. TRAMACET [Suspect]
     Active Substance: ACETAMINOPHEN\TRAMADOL
  2. NEXMEZOL [Suspect]
     Active Substance: ESOMEPRAZOLE MAGNESIUM
     Dosage: 40 MG, UNK
  3. STILPANE /01152401/ [Suspect]
     Active Substance: ACETAMINOPHEN\CAFFEINE\CODEINE PHOSPHATE\MEPROBAMATE
  4. ECOTRIN [Suspect]
     Active Substance: ASPIRIN
     Dosage: 81 MG, UNK
  5. GLAUCOSAN [Suspect]
     Active Substance: TIMOLOL MALEATE
     Dosage: 0.5 %, UNK
  6. BETAPAM [Suspect]
     Active Substance: DIAZEPAM
     Dosage: 5 MG, UNK
  7. ASPAVOR [Suspect]
     Active Substance: ATORVASTATIN
     Dosage: 40 MG, UNK

REACTIONS (1)
  - Haemorrhage [Unknown]
